FAERS Safety Report 8621709-X (Version None)
Quarter: 2012Q3

REPORT INFORMATION
  Report Type: 
  Country: None (occurrence: None)
  Receive Date: 20120825
  Receipt Date: 20120811
  Transmission Date: 20120928
  Serious: Yes (Other)
  Sender: FDA-Public Use
  Company Number: US-009507513-1208USA006602

PATIENT

DRUGS (1)
  1. PEG-INTRON [Suspect]
     Indication: HEPATITIS C

REACTIONS (6)
  - CONSTIPATION [None]
  - FATIGUE [None]
  - DYSURIA [None]
  - INSOMNIA [None]
  - RED BLOOD CELL COUNT DECREASED [None]
  - NO THERAPEUTIC RESPONSE [None]
